FAERS Safety Report 9157908 (Version 2)
Quarter: 2013Q1

REPORT INFORMATION
  Report Type: Spontaneous
  Country: DE (occurrence: None)
  Receive Date: 20130213
  Receipt Date: 20130315
  Transmission Date: 20140127
  Serious: Yes (Hospitalization)
  Sender: FDA-Public Use
  Company Number: AUR-APL-2013-01295

PATIENT
  Age: 73 Year
  Sex: Female
  Weight: 62 kg

DRUGS (3)
  1. ALENDRONIC ACID [Suspect]
     Route: 048
     Dates: start: 201207
  2. OPIPRAMOL (OPIPRAMOL) [Concomitant]
  3. RESTEX (MADOPAR /00349201/) [Concomitant]

REACTIONS (5)
  - Face oedema [None]
  - Tongue discolouration [None]
  - Tongue ulceration [None]
  - Paraesthesia oral [None]
  - Glossodynia [None]
